FAERS Safety Report 5576037-6 (Version None)
Quarter: 2007Q4

REPORT INFORMATION
  Report Type: 
  Country: None (occurrence: None)
  Receive Date: 20071228
  Receipt Date: 20071105
  Transmission Date: 20080405
  Serious: No
  Sender: FDA-Public Use
  Company Number: A0689559A

PATIENT
  Age: 18 Year
  Sex: Female
  Weight: 44.6 kg

DRUGS (3)
  1. ADVAIR DISKUS 100/50 [Suspect]
     Indication: DRUG USE FOR UNKNOWN INDICATION
     Dosage: 1PUFF TWICE PER DAY
     Route: 055
     Dates: start: 20070101
  2. SINGULAIR [Concomitant]
     Route: 048
     Dates: start: 20061001
  3. ALBUTEROL [Concomitant]
     Dosage: 2PUFF AS REQUIRED
     Route: 045

REACTIONS (3)
  - EXPIRED DRUG ADMINISTERED [None]
  - HEART RATE INCREASED [None]
  - TREMOR [None]
